FAERS Safety Report 9284339 (Version 1)
Quarter: 2013Q2

REPORT INFORMATION
  Report Type: Spontaneous
  Country: US (occurrence: US)
  Receive Date: 20130510
  Receipt Date: 20130510
  Transmission Date: 20140414
  Serious: No
  Sender: FDA-Public Use
  Company Number: US-PFIZER INC-2013145272

PATIENT
  Age: 74 Year
  Sex: Female
  Weight: 58.96 kg

DRUGS (3)
  1. LYRICA [Suspect]
     Indication: PELVIC PAIN
     Dosage: 100 MG, 1X/DAY
     Dates: start: 20130506
  2. AMLODIPINE [Concomitant]
     Indication: HYPERTENSION
     Dosage: UNK
  3. SIMVASTATIN [Concomitant]
     Indication: BLOOD CHOLESTEROL INCREASED
     Dosage: UNK, DAILY

REACTIONS (2)
  - Dizziness [Recovering/Resolving]
  - Feeling abnormal [Recovering/Resolving]
